FAERS Safety Report 14306542 (Version 3)
Quarter: 2018Q1

REPORT INFORMATION
  Report Type: Spontaneous
  Country: JP (occurrence: JP)
  Receive Date: 20171220
  Receipt Date: 20180212
  Transmission Date: 20180509
  Serious: Yes (Hospitalization, Other)
  Sender: FDA-Public Use
  Company Number: JP-ROCHE-2040781

PATIENT
  Age: 36 Year
  Sex: Female

DRUGS (3)
  1. TACROLIMUS HYDRATE [Suspect]
     Active Substance: TACROLIMUS
     Indication: ACUTE KIDNEY INJURY
     Dosage: DOSAGE IS UNCERTAIN.
     Route: 065
  2. CELLCEPT [Suspect]
     Active Substance: MYCOPHENOLATE MOFETIL\MYCOPHENOLATE MOFETIL HYDROCHLORIDE
     Indication: ACUTE KIDNEY INJURY
     Dosage: DOSAGE IS UNCERTAIN.
     Route: 048
  3. PREDNISOLONE. [Suspect]
     Active Substance: PREDNISOLONE
     Indication: PRODUCT USED FOR UNKNOWN INDICATION
     Route: 065

REACTIONS (8)
  - Peritonitis [Unknown]
  - Anastomotic ulcer [Unknown]
  - Melaena [Unknown]
  - Product use in unapproved indication [Unknown]
  - Anaemia [Unknown]
  - Off label use [Unknown]
  - Small intestinal haemorrhage [Recovered/Resolved]
  - Arterial haemorrhage [Unknown]
